FAERS Safety Report 10334816 (Version 1)
Quarter: 2014Q3

REPORT INFORMATION
  Report Type: Spontaneous
  Country: US (occurrence: None)
  Receive Date: 20140722
  Receipt Date: 20140722
  Transmission Date: 20150326
  Serious: Yes (Other)
  Sender: FDA-Public Use
  Company Number: None

PATIENT
  Age: 77 Year
  Sex: Female

DRUGS (5)
  1. CITACAL MAXIMUM [Concomitant]
  2. CLONAZEPAM. [Concomitant]
     Active Substance: CLONAZEPAM
  3. CEFUROXIME (GENERIC FOR CEFTIN) 250 MG LUPI [Suspect]
     Active Substance: CEFUROXIME AXETIL
     Indication: SALIVARY GLAND ENLARGEMENT
     Dosage: 250 MG?1 PILL?TWICE DAILY?MOUTH??(TOOK 4 TABLET)
     Route: 048
     Dates: start: 20140523, end: 20140525
  4. CENTRUM SILVER [Concomitant]
     Active Substance: VITAMINS
  5. AMOXICILLIAN 500MG -GENERIC FOR AMOXIL SAND [Suspect]
     Active Substance: AMOXICILLIN

REACTIONS (2)
  - Urticaria [None]
  - Erythema [None]

NARRATIVE: CASE EVENT DATE: 20140523
